FAERS Safety Report 23028598 (Version 1)
Quarter: 2023Q4

REPORT INFORMATION
  Report Type: Spontaneous
  Country: US (occurrence: US)
  Receive Date: 20231004
  Receipt Date: 20231004
  Transmission Date: 20240109
  Serious: No
  Sender: FDA-Public Use
  Company Number: US-PFIZER INC-202300313201

PATIENT

DRUGS (2)
  1. PAXLOVID [Interacting]
     Active Substance: NIRMATRELVIR\RITONAVIR
     Indication: COVID-19 treatment
     Dosage: 400 MG, 2X/DAY (100, 300,TWO IN THE EVENING AND TWO IN THE MORNING)
  2. SIMVASTATIN [Interacting]
     Active Substance: SIMVASTATIN
     Dosage: UNK

REACTIONS (2)
  - Contraindicated product administered [Unknown]
  - Labelled drug-drug interaction medication error [Unknown]
